FAERS Safety Report 7128106-7 (Version None)
Quarter: 2010Q4

REPORT INFORMATION
  Report Type: 
  Country: None (occurrence: None)
  Receive Date: 20101130
  Receipt Date: 20101124
  Transmission Date: 20110411
  Serious: Yes (Life-Threatening, Hospitalization, Other)
  Sender: FDA-Public Use
  Company Number: GB-SANOFI-AVENTIS-2010SA015655

PATIENT
  Age: 53 Year
  Sex: Male
  Weight: 75.7 kg

DRUGS (7)
  1. OXALIPLATIN [Suspect]
     Route: 042
     Dates: start: 20091123, end: 20091123
  2. OXALIPLATIN [Suspect]
     Route: 042
     Dates: start: 20100304, end: 20100304
  3. 5-FU [Suspect]
     Route: 042
     Dates: start: 20091123, end: 20091123
  4. 5-FU [Suspect]
     Route: 042
     Dates: start: 20100304, end: 20100304
  5. LEUCOVORIN CALCIUM [Suspect]
     Route: 042
     Dates: start: 20091123, end: 20091123
  6. LEUCOVORIN CALCIUM [Suspect]
     Route: 042
     Dates: start: 20100304, end: 20100304
  7. AMLODIPINE [Concomitant]

REACTIONS (6)
  - ABDOMINAL COMPARTMENT SYNDROME [None]
  - ACUTE RESPIRATORY DISTRESS SYNDROME [None]
  - HAEMODIALYSIS [None]
  - PERITONITIS [None]
  - RENAL FAILURE [None]
  - SEPSIS [None]
